FAERS Safety Report 7345279-1 (Version None)
Quarter: 2011Q1

REPORT INFORMATION
  Report Type: 
  Country: None (occurrence: None)
  Receive Date: 20110310
  Receipt Date: 20110223
  Transmission Date: 20110831
  Serious: Yes (Hospitalization, Disabling, Other)
  Sender: FDA-Public Use
  Company Number: US-BAYER-201036125NA

PATIENT
  Sex: Female
  Weight: 97.95 kg

DRUGS (7)
  1. AGGRENOX [Concomitant]
  2. NSAID'S [Concomitant]
  3. AUGMENTIN '125' [Concomitant]
     Dosage: UNK
     Dates: start: 20070401
  4. XANAX [Concomitant]
     Dosage: 0.25 MG, QD
     Route: 048
  5. YAZ [Suspect]
     Indication: PRODUCT USED FOR UNKNOWN INDICATION
     Route: 048
     Dates: start: 20070601, end: 20070801
  6. LIPITOR [Concomitant]
  7. UNCODEABLE ^UNCLASSIFIABLE^ [Concomitant]
     Dosage: UNK UNK, PRN

REACTIONS (7)
  - ISCHAEMIC STROKE [None]
  - MENTAL STATUS CHANGES [None]
  - DEPRESSION [None]
  - ANXIETY [None]
  - MEMORY IMPAIRMENT [None]
  - HEADACHE [None]
  - APHASIA [None]
